FAERS Safety Report 6242157-6 (Version None)
Quarter: 2009Q2

REPORT INFORMATION
  Report Type: 
  Country: None (occurrence: None)
  Receive Date: 20090622
  Receipt Date: 20090622
  Transmission Date: 20091009
  Serious: No
  Sender: FDA-Public Use
  Company Number: None

PATIENT
  Age: 50 Year
  Sex: Female
  Weight: 93.2 kg

DRUGS (1)
  1. MORPHINE SULFATE IR [Suspect]
     Indication: METASTATIC NEOPLASM
     Dosage: MSIR 15 MG Q4 HRS PRN PAIN PO
     Route: 048
     Dates: start: 20090504, end: 20090601

REACTIONS (3)
  - DRUG DISPENSING ERROR [None]
  - MEDICATION ERROR [None]
  - WRONG DRUG ADMINISTERED [None]
